FAERS Safety Report 19996997 (Version 4)
Quarter: 2022Q1

REPORT INFORMATION
  Report Type: Report from Study
  Country: PT (occurrence: PT)
  Receive Date: 20211026
  Receipt Date: 20220120
  Transmission Date: 20220423
  Serious: Yes (Other)
  Sender: FDA-Public Use
  Company Number: PT-ABBVIE-21K-130-4132454-00

PATIENT
  Age: 44 Year
  Sex: Female

DRUGS (3)
  1. SKYRIZI [Suspect]
     Active Substance: RISANKIZUMAB-RZAA
     Indication: Psoriasis
     Dosage: LOADING DOSE 1
     Route: 058
     Dates: start: 20201014, end: 20201014
  2. SKYRIZI [Suspect]
     Active Substance: RISANKIZUMAB-RZAA
     Dosage: LOADING DOSE 2
     Route: 058
     Dates: start: 20201111, end: 20201111
  3. SKYRIZI [Suspect]
     Active Substance: RISANKIZUMAB-RZAA
     Route: 058
     Dates: start: 20210203

REACTIONS (10)
  - Mastitis [Recovered/Resolved]
  - Erythema [Recovered/Resolved]
  - Psoriatic arthropathy [Recovered/Resolved]
  - Blood triglycerides increased [Not Recovered/Not Resolved]
  - Blood cholesterol increased [Not Recovered/Not Resolved]
  - Psoriasis [Recovered/Resolved]
  - Breast cyst [Not Recovered/Not Resolved]
  - Skin warm [Recovered/Resolved]
  - Breast pain [Recovered/Resolved]
  - Psoriasis [Recovered/Resolved]

NARRATIVE: CASE EVENT DATE: 20211001
